FAERS Safety Report 17356445 (Version 1)
Quarter: 2020Q1

REPORT INFORMATION
  Report Type: Spontaneous
  Country: US (occurrence: US)
  Receive Date: 20200131
  Receipt Date: 20200131
  Transmission Date: 20200409
  Serious: No
  Sender: FDA-Public Use
  Company Number: US-SHIRE-US202003076

PATIENT
  Age: 26 Year
  Sex: Male
  Weight: 72.56 kg

DRUGS (2)
  1. VYVANSE [Suspect]
     Active Substance: LISDEXAMFETAMINE DIMESYLATE
     Indication: ATTENTION DEFICIT/HYPERACTIVITY DISORDER
     Dosage: 60 MILLIGRAM, 1X/DAY:QD
     Route: 048
  2. DEXTROAMPHETAMINE. [Concomitant]
     Active Substance: DEXTROAMPHETAMINE
     Indication: ATTENTION DEFICIT/HYPERACTIVITY DISORDER

REACTIONS (8)
  - Mental disorder [Not Recovered/Not Resolved]
  - Product dose omission [Not Recovered/Not Resolved]
  - Migraine [Not Recovered/Not Resolved]
  - Drug ineffective [Not Recovered/Not Resolved]
  - Dysarthria [Unknown]
  - Dysgeusia [Not Recovered/Not Resolved]
  - Frustration tolerance decreased [Not Recovered/Not Resolved]
  - Thinking abnormal [Not Recovered/Not Resolved]

NARRATIVE: CASE EVENT DATE: 2019
